FAERS Safety Report 13740153 (Version 1)
Quarter: 2017Q3

REPORT INFORMATION
  Report Type: Report from Study
  Country: VN (occurrence: VN)
  Receive Date: 20170711
  Receipt Date: 20170711
  Transmission Date: 20171127
  Serious: Yes (Hospitalization, Other)
  Sender: FDA-Public Use
  Company Number: VN-ROCHE-1960174

PATIENT
  Sex: Female

DRUGS (2)
  1. VINORELBINE [Concomitant]
     Active Substance: VINORELBINE\VINORELBINE TARTRATE
     Route: 065
  2. HERCEPTIN [Suspect]
     Active Substance: TRASTUZUMAB
     Indication: BREAST CANCER STAGE II
     Route: 041

REACTIONS (3)
  - Off label use [Unknown]
  - Osteoporosis [Unknown]
  - Fall [Unknown]

NARRATIVE: CASE EVENT DATE: 20160917
